FAERS Safety Report 9879820 (Version 1)
Quarter: 2014Q1

REPORT INFORMATION
  Report Type: Spontaneous
  Country: GB (occurrence: GB)
  Receive Date: 20140206
  Receipt Date: 20140206
  Transmission Date: 20141002
  Serious: Yes (Life-Threatening, Hospitalization, Other)
  Sender: FDA-Public Use
  Company Number: GB-ACTAVISPR-2014-01549

PATIENT
  Age: 67 Year
  Sex: Male

DRUGS (3)
  1. RIFAMPICIN (UNKNOWN) [Suspect]
     Indication: STAPHYLOCOCCAL INFECTION
     Dosage: 300 MG, BID
     Route: 048
  2. VANCOMYCIN [Suspect]
     Indication: STAPHYLOCOCCAL INFECTION
     Dosage: UNK
     Route: 042
  3. AMIKACIN [Suspect]
     Indication: STAPHYLOCOCCAL INFECTION
     Dosage: 7.5 MG/KG, DAILY
     Route: 065

REACTIONS (4)
  - Staphylococcal bacteraemia [Recovered/Resolved]
  - Condition aggravated [Recovered/Resolved]
  - Drug resistance [Unknown]
  - Drug ineffective [Unknown]
